FAERS Safety Report 11130084 (Version 2)
Quarter: 2015Q2

REPORT INFORMATION
  Report Type: Spontaneous
  Country: BR (occurrence: BR)
  Receive Date: 20150521
  Receipt Date: 20150609
  Transmission Date: 20150821
  Serious: No
  Sender: FDA-Public Use
  Company Number: PHHY2015BR061715

PATIENT
  Sex: Female

DRUGS (1)
  1. EXELON PATCH [Suspect]
     Active Substance: RIVASTIGMINE
     Indication: CHILLS
     Dosage: 9.5 MG (EXELON PATCH 10 CM2), QD
     Route: 062

REACTIONS (1)
  - Off label use [Unknown]
